FAERS Safety Report 8542170-X (Version None)
Quarter: 2012Q3

REPORT INFORMATION
  Report Type: 
  Country: None (occurrence: None)
  Receive Date: 20120726
  Receipt Date: 20111011
  Transmission Date: 20120928
  Serious: No
  Sender: FDA-Public Use
  Company Number: US-ASTRAZENECA-2011SE61358

PATIENT
  Age: 56 Year
  Sex: Female
  Weight: 65.8 kg

DRUGS (2)
  1. SEROQUEL XR [Suspect]
     Indication: SLEEP DISORDER
     Route: 048
     Dates: start: 20110101
  2. EFFEXOR [Concomitant]
     Indication: DEPRESSION

REACTIONS (2)
  - OFF LABEL USE [None]
  - NASOPHARYNGITIS [None]
